FAERS Safety Report 6175273-8 (Version None)
Quarter: 2009Q2

REPORT INFORMATION
  Report Type: 
  Country: None (occurrence: None)
  Receive Date: 20090430
  Receipt Date: 20090204
  Transmission Date: 20091009
  Serious: No
  Sender: FDA-Public Use
  Company Number: US-ASTRAZENECA-2009UW03392

PATIENT
  Age: 61 Year
  Sex: Female
  Weight: 108.9 kg

DRUGS (3)
  1. NEXIUM [Suspect]
     Indication: GASTROOESOPHAGEAL REFLUX DISEASE
     Route: 048
  2. CRESTOR [Suspect]
     Dosage: UNKNOWN
     Route: 048
  3. DIOVAN HCT [Concomitant]

REACTIONS (2)
  - DRUG INEFFECTIVE [None]
  - GASTROOESOPHAGEAL REFLUX DISEASE [None]
